FAERS Safety Report 12581784 (Version 3)
Quarter: 2016Q3

REPORT INFORMATION
  Report Type: Spontaneous
  Country: IT (occurrence: IT)
  Receive Date: 20160722
  Receipt Date: 20160916
  Transmission Date: 20161109
  Serious: Yes (Death, Life-Threatening, Other)
  Sender: FDA-Public Use
  Company Number: IT-UCBSA-2016026987

PATIENT
  Age: 53 Year
  Sex: Male
  Weight: 75 kg

DRUGS (10)
  1. FELISON [Suspect]
     Active Substance: FLURAZEPAM MONOHYDROCHLORIDE
     Indication: PSYCHOTIC DISORDER
     Dosage: 30MG, DAILY
     Route: 048
     Dates: start: 20160610, end: 20160617
  2. METBAY [Concomitant]
     Indication: DIABETES MELLITUS
     Dosage: 1250 MG, UNK
     Route: 048
     Dates: start: 20160610, end: 20160617
  3. PROCAPTAN [Concomitant]
     Active Substance: PERINDOPRIL ERBUMINE
     Indication: HYPERTENSION
     Dosage: 2.5 MG, UNK
     Route: 048
     Dates: start: 20160610, end: 20160617
  4. CARDIOASPIRIN [Concomitant]
     Active Substance: ASPIRIN
     Indication: PRODUCT USED FOR UNKNOWN INDICATION
     Dosage: 100 MG, UNK
     Route: 048
     Dates: start: 20160610, end: 20160617
  5. KEPPRA [Suspect]
     Active Substance: LEVETIRACETAM
     Indication: EPILEPSY
     Dosage: 1000MG, DAILY
     Route: 048
     Dates: start: 20160610, end: 20160617
  6. ENTUMIN [Suspect]
     Active Substance: CLOTHIAPINE
     Indication: PSYCHOTIC DISORDER
     Dosage: 34 DROPS, DAILY
     Route: 048
     Dates: start: 20160610, end: 20160617
  7. RISPERIDONE SANDOZ [Suspect]
     Active Substance: RISPERIDONE
     Indication: PSYCHOTIC DISORDER
     Dosage: 6MG, DAILY
     Route: 048
     Dates: start: 20160610, end: 20160617
  8. TAVOR (LORAZEPAM) [Suspect]
     Active Substance: LORAZEPAM
     Indication: PSYCHOTIC DISORDER
     Dosage: 7.5MG, DAILY
     Route: 048
     Dates: start: 20160610, end: 20160617
  9. NORVASC [Concomitant]
     Active Substance: AMLODIPINE BESYLATE
     Indication: HYPERTENSION
     Dosage: 5 MG, UNK
     Route: 048
     Dates: start: 20160610, end: 20160617
  10. BISOPROLOL SANDOZ [Concomitant]
     Active Substance: BISOPROLOL
     Indication: PRODUCT USED FOR UNKNOWN INDICATION
     Dosage: 2.5 MG, UNK
     Route: 048
     Dates: start: 20160610, end: 20160617

REACTIONS (1)
  - Neuroleptic malignant syndrome [Fatal]

NARRATIVE: CASE EVENT DATE: 20160617
